FAERS Safety Report 9064789 (Version 1)
Quarter: 2013Q1

REPORT INFORMATION
  Report Type: Spontaneous
  Country: TR (occurrence: TR)
  Receive Date: 20130214
  Receipt Date: 20130214
  Transmission Date: 20140127
  Serious: Yes (Hospitalization)
  Sender: FDA-Public Use
  Company Number: TR-AMGEN-TURSP2013010250

PATIENT
  Age: 64 Year
  Sex: Female

DRUGS (1)
  1. ENBREL [Suspect]
     Indication: RHEUMATOID ARTHRITIS
     Dosage: 50 MG, WEEKLY
     Route: 058
     Dates: start: 201108, end: 20130106

REACTIONS (3)
  - Walking disability [Recovering/Resolving]
  - Pain in extremity [Recovering/Resolving]
  - Musculoskeletal stiffness [Recovering/Resolving]
